FAERS Safety Report 8322685-X (Version None)
Quarter: 2012Q2

REPORT INFORMATION
  Report Type: 
  Country: None (occurrence: None)
  Receive Date: 20120430
  Receipt Date: 20120424
  Transmission Date: 20120825
  Serious: Yes (Hospitalization, Disabling, Other)
  Sender: FDA-Public Use
  Company Number: US-MERCK-1202USA02295

PATIENT
  Age: 63 Year
  Sex: Female

DRUGS (2)
  1. FOSAMAX [Suspect]
     Indication: RHEUMATOID ARTHRITIS
     Route: 048
     Dates: start: 20030101, end: 20090101
  2. FOSAMAX [Suspect]
     Indication: OSTEOPOROSIS
     Route: 048
     Dates: start: 20030101, end: 20090101

REACTIONS (20)
  - NERVE ROOT COMPRESSION [None]
  - DEVICE FAILURE [None]
  - INTERVERTEBRAL DISC DEGENERATION [None]
  - SPONDYLOLISTHESIS [None]
  - BACK DISORDER [None]
  - STAPHYLOCOCCAL INFECTION [None]
  - RADICULOPATHY [None]
  - KNEE DEFORMITY [None]
  - LUMBAR SPINAL STENOSIS [None]
  - MUSCLE SPASMS [None]
  - PAIN IN EXTREMITY [None]
  - OFF LABEL USE [None]
  - VERTEBRAL FORAMINAL STENOSIS [None]
  - FRACTURE [None]
  - BACK PAIN [None]
  - MUSCULAR WEAKNESS [None]
  - INTERVERTEBRAL DISC PROTRUSION [None]
  - NEUROLOGICAL EXAMINATION ABNORMAL [None]
  - FEMUR FRACTURE [None]
  - HYPERTENSION [None]
